FAERS Safety Report 7808427-2 (Version None)
Quarter: 2011Q4

REPORT INFORMATION
  Report Type: 
  Country: None (occurrence: None)
  Receive Date: 20111011
  Receipt Date: 20111011
  Transmission Date: 20120403
  Serious: Yes (Hospitalization)
  Sender: FDA-Public Use
  Company Number: None

PATIENT
  Age: 66 Year
  Sex: Female
  Weight: 84.369 kg

DRUGS (10)
  1. ATIVAN [Concomitant]
  2. COLACE [Concomitant]
  3. MULTAQ [Concomitant]
  4. CARDIZEM CD [Concomitant]
  5. VALPROIC ACID [Concomitant]
  6. ASPIRIN [Concomitant]
  7. HALDOL [Concomitant]
  8. SEROQUEL [Concomitant]
  9. DECADRON [Concomitant]
  10. GLIADEL [Suspect]
     Indication: GLIOBLASTOMA
     Dosage: IMPLANT DURING SURGERY
     Dates: start: 20110601

REACTIONS (2)
  - INTESTINAL PERFORATION [None]
  - PNEUMOPERITONEUM [None]
